FAERS Safety Report 22056778 (Version 1)
Quarter: 2023Q1

REPORT INFORMATION
  Report Type: Spontaneous
  Country: JP (occurrence: JP)
  Receive Date: 20230303
  Receipt Date: 20230303
  Transmission Date: 20230418
  Serious: Yes (Other)
  Sender: FDA-Public Use
  Company Number: JP-BRISTOL-MYERS SQUIBB COMPANY-2023-027499

PATIENT
  Age: 8 Decade
  Sex: Female

DRUGS (5)
  1. EMPLICITI [Suspect]
     Active Substance: ELOTUZUMAB
     Indication: Plasma cell myeloma
     Route: 041
  2. REVLIMID [Suspect]
     Active Substance: LENALIDOMIDE
     Indication: Plasma cell myeloma
     Route: 048
  3. LENADEX [Suspect]
     Active Substance: DEXAMETHASONE ACETATE
     Indication: Plasma cell myeloma
     Route: 048
  4. BORTEZOMIB [Suspect]
     Active Substance: BORTEZOMIB
     Indication: Plasma cell myeloma
  5. CARFILZOMIB [Suspect]
     Active Substance: CARFILZOMIB
     Indication: Plasma cell myeloma

REACTIONS (5)
  - Neuropathy peripheral [Unknown]
  - Gastric ulcer [Unknown]
  - Herpes zoster [Unknown]
  - Rash [Unknown]
  - Loss of personal independence in daily activities [Unknown]
